FAERS Safety Report 13191741 (Version 2)
Quarter: 2020Q3

REPORT INFORMATION
  Report Type: Report from Study
  Country: CR (occurrence: CR)
  Receive Date: 20170207
  Receipt Date: 20170307
  Transmission Date: 20201104
  Serious: Yes (Hospitalization)
  Sender: FDA-Public Use
  Company Number: CR-ROCHE-1644768

PATIENT
  Age: 49 Year
  Sex: Female
  Weight: 83 kg

DRUGS (7)
  1. CEFOTAXIME [Concomitant]
     Active Substance: CEFOTAXIME SODIUM
     Indication: URINARY TRACT INFECTION
     Route: 065
     Dates: start: 20151012, end: 20151015
  2. MORPHINE [Concomitant]
     Active Substance: MORPHINE
     Indication: CHEST PAIN
     Route: 065
     Dates: start: 201506
  3. ACETAMINOPHEN. [Concomitant]
     Active Substance: ACETAMINOPHEN
     Indication: HEADACHE
     Route: 065
     Dates: start: 20151014, end: 20151014
  4. ALECTINIB. [Suspect]
     Active Substance: ALECTINIB
     Dosage: RESUMED  WITH REDUCED DOSE
     Route: 048
  5. GRAVOL [Concomitant]
     Active Substance: DIMENHYDRINATE
     Indication: NAUSEA
     Route: 065
     Dates: start: 20151014, end: 20151015
  6. ALECTINIB. [Suspect]
     Active Substance: ALECTINIB
     Indication: NON-SMALL CELL LUNG CANCER
     Dosage: MOST RECENT DOSE ON 08/OCT/2015
     Route: 048
     Dates: start: 20150708
  7. FLUOXETINE [Concomitant]
     Active Substance: FLUOXETINE HYDROCHLORIDE
     Indication: PERINATAL DEPRESSION
     Route: 065
     Dates: start: 201507

REACTIONS (1)
  - Pneumonia [Recovered/Resolved]

NARRATIVE: CASE EVENT DATE: 20151008
